FAERS Safety Report 5157533-2 (Version None)
Quarter: 2006Q4

REPORT INFORMATION
  Report Type: 
  Country: None (occurrence: None)
  Receive Date: 20061127
  Receipt Date: 20061110
  Transmission Date: 20070319
  Serious: Yes (Death)
  Sender: FDA-Public Use
  Company Number: AU-GLAXOSMITHKLINE-B0446724A

PATIENT
  Age: 55 Year
  Sex: Male

DRUGS (6)
  1. AROPAX [Suspect]
     Indication: DRUG USE FOR UNKNOWN INDICATION
     Dosage: 20MG THREE TIMES PER DAY
     Route: 065
  2. ZYPREXA [Concomitant]
     Route: 065
  3. VALIUM [Concomitant]
     Route: 065
  4. ENDONE [Concomitant]
     Route: 065
  5. ACETAMINOPHEN W/ CODEINE [Concomitant]
     Route: 065
  6. IMOVANE [Concomitant]
     Route: 065

REACTIONS (3)
  - DEATH [None]
  - DRUG LEVEL INCREASED [None]
  - NEUROFIBROMATOSIS [None]
